FAERS Safety Report 6433833-0 (Version None)
Quarter: 2009Q4

REPORT INFORMATION
  Report Type: 
  Country: None (occurrence: None)
  Receive Date: 20091106
  Receipt Date: 20091106
  Transmission Date: 20100525
  Serious: Yes (Hospitalization)
  Sender: FDA-Public Use
  Company Number: None

PATIENT
  Age: 82 Year

DRUGS (1)
  1. TERAZOSIN HCL [Suspect]
     Indication: BENIGN PROSTATIC HYPERPLASIA
     Dosage: 6 MG AT BEDTIME PO
     Route: 048
     Dates: start: 20030701, end: 20081217

REACTIONS (2)
  - DRUG DOSE OMISSION [None]
  - SYNCOPE [None]
